FAERS Safety Report 25398608 (Version 1)
Quarter: 2025Q2

REPORT INFORMATION
  Report Type: Report from Study
  Country: US (occurrence: US)
  Receive Date: 20250604
  Receipt Date: 20250604
  Transmission Date: 20250716
  Serious: Yes (Other)
  Sender: ALEXION PHARMACEUTICALS
  Company Number: US-AstraZeneca-CH-00883032A

PATIENT

DRUGS (1)
  1. OSIMERTINIB [Suspect]
     Active Substance: OSIMERTINIB
     Indication: Lung carcinoma cell type unspecified stage 0

REACTIONS (4)
  - Malignant neoplasm progression [Not Recovered/Not Resolved]
  - Thrombosis [Not Recovered/Not Resolved]
  - Nausea [Not Recovered/Not Resolved]
  - Tongue ulceration [Not Recovered/Not Resolved]
